FAERS Safety Report 7272518-8 (Version None)
Quarter: 2011Q1

REPORT INFORMATION
  Report Type: 
  Country: None (occurrence: None)
  Receive Date: 20110203
  Receipt Date: 20110120
  Transmission Date: 20110831
  Serious: Yes (Hospitalization)
  Sender: FDA-Public Use
  Company Number: IT-CELGENEUS-083-21880-11012088

PATIENT
  Sex: Female

DRUGS (1)
  1. REVLIMID [Suspect]
     Indication: MYELOMA RECURRENCE
     Route: 048
     Dates: start: 20101125, end: 20101215

REACTIONS (2)
  - CARDIAC FIBRILLATION [None]
  - HYPERTENSIVE CARDIOMYOPATHY [None]
